FAERS Safety Report 20737478 (Version 1)
Quarter: 2022Q2

REPORT INFORMATION
  Report Type: Report from Study
  Country: KR (occurrence: KR)
  Receive Date: 20220421
  Receipt Date: 20220421
  Transmission Date: 20220721
  Serious: Yes (Hospitalization)
  Sender: FDA-Public Use
  Company Number: KR-JNJFOC-20220427100

PATIENT
  Age: 80 Year
  Sex: Female

DRUGS (13)
  1. DARATUMUMAB [Suspect]
     Active Substance: DARATUMUMAB
     Indication: Plasma cell myeloma
     Route: 042
     Dates: start: 20200316, end: 20200316
  2. DARATUMUMAB [Suspect]
     Active Substance: DARATUMUMAB
     Route: 042
     Dates: start: 20200330, end: 20200330
  3. DARATUMUMAB [Suspect]
     Active Substance: DARATUMUMAB
     Route: 042
     Dates: start: 20200406, end: 20200406
  4. DICAMAX [Concomitant]
     Dosage: 1 TAB QD
     Route: 048
     Dates: start: 20171122
  5. NALOXONE HYDROCHLORIDE\OXYCODONE HYDROCHLORIDE [Concomitant]
     Active Substance: NALOXONE HYDROCHLORIDE\OXYCODONE HYDROCHLORIDE
     Dosage: 1 TAB BID
     Route: 048
     Dates: start: 20200302
  6. CELEBREX [Concomitant]
     Active Substance: CELECOXIB
     Dosage: 200 MCG BID
     Route: 048
     Dates: start: 20171121
  7. LANSOPRAZOLE [Concomitant]
     Active Substance: LANSOPRAZOLE
     Indication: Gastrointestinal disorder therapy
     Dosage: QD
     Route: 048
     Dates: start: 20190309
  8. LEVOFLOXACIN [Concomitant]
     Active Substance: LEVOFLOXACIN
     Dosage: QD
     Route: 048
     Dates: start: 20200130
  9. FLUCONAZOLE [Concomitant]
     Active Substance: FLUCONAZOLE
     Dosage: QID
     Route: 048
     Dates: start: 20200320
  10. DEXAMETHASONE [Concomitant]
     Active Substance: DEXAMETHASONE
     Dosage: PRE INFUSION MEDICATION
     Route: 042
     Dates: start: 20200316
  11. PENIRAMIN [Concomitant]
     Route: 042
     Dates: start: 20200316
  12. PENIRAMIN [Concomitant]
     Dosage: PRN
     Route: 042
     Dates: start: 20200316, end: 20200316
  13. PREDNISOLONE [Concomitant]
     Active Substance: PREDNISOLONE
     Route: 048
     Dates: start: 20200317

REACTIONS (1)
  - Liver function test increased [Recovered/Resolved]

NARRATIVE: CASE EVENT DATE: 20200316
